FAERS Safety Report 13721172 (Version 2)
Quarter: 2017Q3

REPORT INFORMATION
  Report Type: Spontaneous
  Country: BR (occurrence: BR)
  Receive Date: 20170706
  Receipt Date: 20170712
  Transmission Date: 20171127
  Serious: Yes (Other)
  Sender: FDA-Public Use
  Company Number: BR-ALEXION-A201707431

PATIENT
  Age: 36 Year
  Sex: Female

DRUGS (2)
  1. SOLIRIS [Suspect]
     Active Substance: ECULIZUMAB
     Indication: PAROXYSMAL NOCTURNAL HAEMOGLOBINURIA
     Dosage: 600 MG, QW FOR 4 WEEKS
     Route: 042
     Dates: start: 20150908, end: 20150929
  2. SOLIRIS [Suspect]
     Active Substance: ECULIZUMAB
     Dosage: 900 MG, Q2W
     Route: 042
     Dates: start: 20151006

REACTIONS (7)
  - Chromaturia [Not Recovered/Not Resolved]
  - Haemolysis [Unknown]
  - Haemoglobin decreased [Unknown]
  - Inappropriate schedule of drug administration [Recovered/Resolved]
  - Haemoglobinuria [Unknown]
  - Blood lactate dehydrogenase increased [Unknown]
  - Pain [Not Recovered/Not Resolved]

NARRATIVE: CASE EVENT DATE: 20170614
